FAERS Safety Report 23155993 (Version 1)
Quarter: 2023Q4

REPORT INFORMATION
  Report Type: Report from Study
  Country: US (occurrence: US)
  Receive Date: 20231107
  Receipt Date: 20231107
  Transmission Date: 20240110
  Serious: Yes (Hospitalization)
  Sender: FDA-Public Use
  Company Number: US-MIRATI-MT2023PM05210

PATIENT
  Sex: Male
  Weight: 83.447 kg

DRUGS (1)
  1. KRAZATI [Suspect]
     Active Substance: ADAGRASIB
     Indication: Neuroendocrine tumour
     Dosage: 600 MG, BID
     Route: 048
     Dates: start: 20231011

REACTIONS (5)
  - Hospitalisation [Unknown]
  - Dehydration [Unknown]
  - Decreased appetite [Unknown]
  - Nausea [Unknown]
  - Off label use [Unknown]

NARRATIVE: CASE EVENT DATE: 20231001
